FAERS Safety Report 11029672 (Version 1)
Quarter: 2015Q2

REPORT INFORMATION
  Report Type: Spontaneous
  Country: US (occurrence: None)
  Receive Date: 20150414
  Receipt Date: 20150414
  Transmission Date: 20150821
  Serious: Yes (Death)
  Sender: FDA-Public Use
  Company Number: None

PATIENT
  Age: 42 Year
  Sex: Female
  Weight: 81.5 kg

DRUGS (13)
  1. FENTANYL. [Concomitant]
     Active Substance: FENTANYL
  2. METOCLOPROMIDE [Concomitant]
     Active Substance: METOCLOPRAMIDE
  3. VELIPARIB [Suspect]
     Active Substance: VELIPARIB
     Dosage: 400, BID, PO
     Route: 048
     Dates: start: 20150212, end: 20150312
  4. LACTULOSE. [Concomitant]
     Active Substance: LACTULOSE
  5. LORAZEPAM. [Concomitant]
     Active Substance: LORAZEPAM
  6. ZOMETA [Concomitant]
     Active Substance: ZOLEDRONIC ACID
  7. TRAZODONE [Concomitant]
     Active Substance: TRAZODONE HYDROCHLORIDE
  8. COLACE [Concomitant]
     Active Substance: DOCUSATE SODIUM
  9. OMEPRAZOLE. [Concomitant]
     Active Substance: OMEPRAZOLE
  10. SENNAKOT [Concomitant]
  11. MIRALAX [Concomitant]
     Active Substance: POLYETHYLENE GLYCOL 3350
  12. DILAUDID [Concomitant]
     Active Substance: HYDROMORPHONE HYDROCHLORIDE
  13. DECADRON [Concomitant]
     Active Substance: DEXAMETHASONE

REACTIONS (14)
  - Haematemesis [None]
  - Nausea [None]
  - Rectal haemorrhage [None]
  - Ascites [None]
  - Flank pain [None]
  - Upper gastrointestinal haemorrhage [None]
  - Dehydration [None]
  - Lower gastrointestinal haemorrhage [None]
  - Confusional state [None]
  - Pain [None]
  - Agitation [None]
  - Blood creatinine increased [None]
  - Hyponatraemia [None]
  - Back pain [None]

NARRATIVE: CASE EVENT DATE: 20150330
